FAERS Safety Report 7964124-4 (Version None)
Quarter: 2011Q4

REPORT INFORMATION
  Report Type: 
  Country: None (occurrence: None)
  Receive Date: 20111208
  Receipt Date: 20111130
  Transmission Date: 20120403
  Serious: No
  Sender: FDA-Public Use
  Company Number: US-B.I. PHARMACEUTICALS,INC./RIDGEFIELD-2011-BP-27189BP

PATIENT
  Sex: Male

DRUGS (2)
  1. LASIX [Suspect]
  2. PRADAXA [Suspect]

REACTIONS (1)
  - DERMATITIS ALLERGIC [None]
